FAERS Safety Report 6349257-0 (Version None)
Quarter: 2009Q3

REPORT INFORMATION
  Report Type: 
  Country: None (occurrence: None)
  Receive Date: 20090911
  Receipt Date: 20090908
  Transmission Date: 20100115
  Serious: Yes (Hospitalization)
  Sender: FDA-Public Use
  Company Number: A0788264A

PATIENT
  Age: 52 Year
  Sex: Male

DRUGS (1)
  1. ROSIGLITAZONE [Suspect]
     Route: 048
     Dates: start: 20020901, end: 20060501

REACTIONS (1)
  - MYOCARDIAL INFARCTION [None]
